FAERS Safety Report 6583665-8 (Version None)
Quarter: 2010Q1

REPORT INFORMATION
  Report Type: 
  Country: None (occurrence: None)
  Receive Date: 20100213
  Receipt Date: 20100213
  Transmission Date: 20100710
  Serious: Yes (Other)
  Sender: FDA-Public Use
  Company Number: None

PATIENT
  Age: 15 Year
  Sex: Female

DRUGS (1)
  1. NEXT CHOICE 0.75 MG WATSON [Suspect]
     Indication: CONTRACEPTION
     Dosage: 0.75 ONE TIME PO
     Route: 048
     Dates: start: 20100203, end: 20100203

REACTIONS (3)
  - DYSPNOEA [None]
  - SWELLING FACE [None]
  - URTICARIA [None]
